FAERS Safety Report 15395633 (Version 1)
Quarter: 2018Q3

REPORT INFORMATION
  Report Type: Spontaneous
  Country: CN (occurrence: CN)
  Receive Date: 20180918
  Receipt Date: 20180918
  Transmission Date: 20181010
  Serious: Yes (Hospitalization)
  Sender: FDA-Public Use
  Company Number: CN-JNJFOC-20180907425

PATIENT
  Age: 77 Year
  Sex: Male

DRUGS (1)
  1. XARELTO [Suspect]
     Active Substance: RIVAROXABAN
     Indication: ATRIAL FIBRILLATION
     Route: 048
     Dates: start: 201805

REACTIONS (8)
  - Occult blood positive [Unknown]
  - Abdominal discomfort [Not Recovered/Not Resolved]
  - Hepatic function abnormal [Unknown]
  - Jaundice [Unknown]
  - Off label use [Unknown]
  - Cholecystitis [Unknown]
  - Blood urine present [Unknown]
  - Product use in unapproved indication [Unknown]

NARRATIVE: CASE EVENT DATE: 2018
